FAERS Safety Report 12858793 (Version 3)
Quarter: 2016Q4

REPORT INFORMATION
  Report Type: Spontaneous
  Country: US (occurrence: US)
  Receive Date: 20161018
  Receipt Date: 20161117
  Transmission Date: 20170207
  Serious: No
  Sender: FDA-Public Use
  Company Number: US-NOVOPROD-510705

PATIENT
  Age: 73 Year
  Sex: Female

DRUGS (3)
  1. TRESIBA FLEXTOUCH U200 [Suspect]
     Active Substance: INSULIN DEGLUDEC
     Indication: TYPE 2 DIABETES MELLITUS
     Dosage: 46 U, QD
     Route: 058
     Dates: start: 201607, end: 20160902
  2. NOVOLOG [Suspect]
     Active Substance: INSULIN ASPART
     Indication: TYPE 2 DIABETES MELLITUS
     Dosage: SLIDING SCALE
     Route: 058
  3. TRESIBA [Suspect]
     Active Substance: INSULIN DEGLUDEC
     Indication: TYPE 2 DIABETES MELLITUS
     Dosage: 46 U, QD
     Route: 058
     Dates: start: 20160616

REACTIONS (6)
  - Drug dispensing error [Recovered/Resolved]
  - Palpitations [Recovering/Resolving]
  - Flatulence [Recovered/Resolved]
  - Abdominal distension [Recovered/Resolved]
  - Weight increased [Recovered/Resolved]
  - Dyspnoea [Recovered/Resolved]

NARRATIVE: CASE EVENT DATE: 20160903
